FAERS Safety Report 16315017 (Version 1)
Quarter: 2019Q2

REPORT INFORMATION
  Report Type: Spontaneous
  Country: JP (occurrence: JP)
  Receive Date: 20190515
  Receipt Date: 20190515
  Transmission Date: 20190711
  Serious: Yes (Other)
  Sender: FDA-Public Use
  Company Number: JP-FRESENIUS KABI-FK201905468

PATIENT
  Age: 74 Year
  Sex: Male

DRUGS (9)
  1. CISPLATIN (MANUFACTURER UNKNOWN) [Suspect]
     Active Substance: CISPLATIN
     Indication: GASTRIC CANCER STAGE IV
     Dosage: ON DAY 8
     Route: 065
  2. APREPITANT. [Suspect]
     Active Substance: APREPITANT
     Indication: GASTRIC CANCER STAGE IV
     Dosage: DAY 8
     Route: 048
  3. DEXAMETHASONE INJECTION (MANUFACTURER UNKNOWN) [Suspect]
     Active Substance: DEXAMETHASONE
     Indication: PROPHYLAXIS OF NAUSEA AND VOMITING
     Dosage: DAY 8
     Route: 042
  4. DEXAMETHASONE. [Suspect]
     Active Substance: DEXAMETHASONE
     Indication: PROPHYLAXIS OF NAUSEA AND VOMITING
     Dosage: DAY 9 TO 11
     Route: 048
  5. APREPITANT. [Suspect]
     Active Substance: APREPITANT
     Dosage: DAY 9 AND DAY 10
     Route: 048
  6. DEXAMETHASONE INJECTION (MANUFACTURER UNKNOWN) [Suspect]
     Active Substance: DEXAMETHASONE
     Dosage: DURING COURSE 7 AND 8
     Route: 042
  7. CISPLATIN (MANUFACTURER UNKNOWN) [Suspect]
     Active Substance: CISPLATIN
     Route: 065
  8. OTERACIL/TEGAFUR/GIMERACIL [Concomitant]
     Indication: GASTRIC CANCER STAGE IV
     Dosage: DAY 1 TO DAY 21
     Route: 065
  9. AZASETRON [Suspect]
     Active Substance: AZASETRON
     Indication: GASTRIC CANCER STAGE IV
     Route: 042

REACTIONS (3)
  - Hiccups [Recovered/Resolved]
  - Drug level increased [Unknown]
  - Product use in unapproved indication [Recovered/Resolved]
